FAERS Safety Report 6263122-9 (Version None)
Quarter: 2009Q3

REPORT INFORMATION
  Report Type: 
  Country: None (occurrence: None)
  Receive Date: 20090708
  Receipt Date: 20090708
  Transmission Date: 20100115
  Serious: Yes (Life-Threatening, Hospitalization)
  Sender: FDA-Public Use
  Company Number: None

PATIENT
  Sex: Female
  Weight: 74.8435 kg

DRUGS (1)
  1. BACTRIM [Suspect]
     Indication: LOCALISED INFECTION
     Dosage: 800 MG 12 HOURS ORAL
     Route: 048
     Dates: start: 20081226, end: 20090101

REACTIONS (3)
  - HAEMOLYTIC ANAEMIA [None]
  - PYREXIA [None]
  - VOMITING [None]
